FAERS Safety Report 21815811 (Version 2)
Quarter: 2023Q2

REPORT INFORMATION
  Report Type: Report from Study
  Country: US (occurrence: US)
  Receive Date: 20230104
  Receipt Date: 20230406
  Transmission Date: 20230722
  Serious: No
  Sender: FDA-Public Use
  Company Number: US-ABBVIE-4218988

PATIENT
  Age: 58 Year
  Sex: Female

DRUGS (3)
  1. SKYRIZI [Suspect]
     Active Substance: RISANKIZUMAB-RZAA
     Indication: Psoriasis
     Dosage: FORM OF STRENGTH WAS 150 MILLIGRAM
     Route: 058
     Dates: start: 202208
  2. SKYRIZI [Suspect]
     Active Substance: RISANKIZUMAB-RZAA
     Dosage: FORM STRENGTH WAS 150 MILLIGRAM
  3. LEFLUNOMIDE [Concomitant]
     Active Substance: LEFLUNOMIDE
     Indication: Product used for unknown indication

REACTIONS (5)
  - Arthralgia [Not Recovered/Not Resolved]
  - Inflammatory marker increased [Unknown]
  - Psoriasis [Unknown]
  - Psoriatic arthropathy [Unknown]
  - Therapeutic response shortened [Unknown]

NARRATIVE: CASE EVENT DATE: 20221101
